FAERS Safety Report 16068987 (Version 1)
Quarter: 2019Q1

REPORT INFORMATION
  Report Type: Spontaneous
  Country: US (occurrence: US)
  Receive Date: 20190313
  Receipt Date: 20190313
  Transmission Date: 20190418
  Serious: Yes (Other)
  Sender: FDA-Public Use
  Company Number: US-SA-2019SA065935

PATIENT
  Age: 72 Year
  Sex: Male

DRUGS (1)
  1. JEVTANA [Suspect]
     Active Substance: CABAZITAXEL
     Dosage: 45.8 MG, UNK
     Route: 065
     Dates: start: 20190129

REACTIONS (2)
  - Device related infection [Not Recovered/Not Resolved]
  - Product dose omission [Unknown]
